FAERS Safety Report 23911354 (Version 1)
Quarter: 2024Q2

REPORT INFORMATION
  Report Type: Spontaneous
  Country: US (occurrence: None)
  Receive Date: 20240528
  Receipt Date: 20240528
  Transmission Date: 20240716
  Serious: Yes (Hospitalization)
  Sender: FDA-Public Use
  Company Number: None

PATIENT
  Sex: Female

DRUGS (10)
  1. OCTREOTIDE [Suspect]
     Active Substance: OCTREOTIDE\OCTREOTIDE ACETATE
     Dosage: OTHER STRENGTH : 100MCG/ML;?
     Route: 058
     Dates: start: 20240119
  2. ALBUTEROL AER HFA [Concomitant]
  3. NM-6603 [Concomitant]
     Active Substance: NM-6603
  4. BREO ELLIPTA [Concomitant]
  5. CALCIUM\CHOLECALCIFEROL [Concomitant]
     Active Substance: CALCIUM\CHOLECALCIFEROL
  6. CEQUA [Concomitant]
     Active Substance: CYCLOSPORINE
  7. CITALOPRAM [Concomitant]
     Active Substance: CITALOPRAM\CITALOPRAM HYDROBROMIDE
  8. CLONAZEPAM [Concomitant]
     Active Substance: CLONAZEPAM
  9. DIHYDROERGOT [Concomitant]
  10. FLAX SEED [Concomitant]
     Active Substance: FLAX SEED

REACTIONS (4)
  - Loss of consciousness [None]
  - Rib fracture [None]
  - Cerebral haemorrhage [None]
  - Seizure [None]
